FAERS Safety Report 7516039-3 (Version None)
Quarter: 2011Q2

REPORT INFORMATION
  Report Type: 
  Country: None (occurrence: None)
  Receive Date: 20110601
  Receipt Date: 20110523
  Transmission Date: 20111010
  Serious: Yes (Hospitalization)
  Sender: FDA-Public Use
  Company Number: MX-ROCHE-775941

PATIENT
  Sex: Male
  Weight: 75.5 kg

DRUGS (2)
  1. OMEPRAZOLE [Concomitant]
     Dosage: FREQUENCY: DAILY
     Route: 048
     Dates: start: 20030101
  2. PEGINTERFERON ALFA-2A [Suspect]
     Indication: HEPATITIS C
     Route: 058
     Dates: start: 20101202

REACTIONS (1)
  - RENAL PAIN [None]
